FAERS Safety Report 12614201 (Version 1)
Quarter: 2016Q3

REPORT INFORMATION
  Report Type: Spontaneous
  Country: US (occurrence: None)
  Receive Date: 20160801
  Receipt Date: 20160801
  Transmission Date: 20161109
  Serious: Yes (Other)
  Sender: FDA-Public Use
  Company Number: None

PATIENT
  Age: 2 Month
  Sex: Male
  Weight: 2.34 kg

DRUGS (4)
  1. ZIDOVUDINE, 10 MG/ML [Suspect]
     Active Substance: ZIDOVUDINE
     Indication: CONGENITAL HIV INFECTION
     Route: 048
     Dates: start: 20160711, end: 20160712
  2. BACITRACIN. [Concomitant]
     Active Substance: BACITRACIN
  3. KARAYA GUM. [Concomitant]
     Active Substance: KARAYA GUM
  4. FERROUS SULFATE. [Concomitant]
     Active Substance: FERROUS SULFATE

REACTIONS (1)
  - Neutrophil count abnormal [None]

NARRATIVE: CASE EVENT DATE: 20160725
